FAERS Safety Report 7727786 (Version 5)
Quarter: 2013Q4

REPORT INFORMATION
  Report Type: Spontaneous
  Country: DE (occurrence: DE)
  Receive Date: 20101124
  Receipt Date: 20131108
  Transmission Date: 20140711
  Serious: Yes (Hospitalization, Other)
  Sender: FDA-Public Use
  Company Number: DE-009507513-2010SP060672

PATIENT
  Age: 20 Year
  Sex: Male
  Weight: 52 kg

DRUGS (2)
  1. NOXAFIL [Suspect]
     Indication: CHRONIC GRANULOMATOUS DISEASE
     Dosage: 7.5 ML, BID
     Route: 048
     Dates: start: 20080323, end: 20101111
  2. SULFAMETHOXAZOLE (+) TRIMETHOPRIM [Concomitant]
     Indication: CHRONIC GRANULOMATOUS DISEASE
     Dosage: UNK UNK, QD
     Dates: start: 1995

REACTIONS (1)
  - Congestive cardiomyopathy [Not Recovered/Not Resolved]
